FAERS Safety Report 15628346 (Version 5)
Quarter: 2020Q2

REPORT INFORMATION
  Report Type: Report from Study
  Country: US (occurrence: US)
  Receive Date: 20181116
  Receipt Date: 20200608
  Transmission Date: 20200713
  Serious: No
  Sender: FDA-Public Use
  Company Number: PHEH2018US047952

PATIENT
  Sex: Female
  Weight: 67 kg

DRUGS (2)
  1. COSENTYX [Suspect]
     Active Substance: SECUKINUMAB
     Indication: ANKYLOSING SPONDYLITIS
     Dosage: 150 MG, QMO
     Route: 058
     Dates: start: 20180202
  2. COSENTYX [Suspect]
     Active Substance: SECUKINUMAB
     Dosage: 150 MG, QMO
     Route: 058
     Dates: start: 20180628

REACTIONS (9)
  - Pruritus [Unknown]
  - Pain in extremity [Not Recovered/Not Resolved]
  - Influenza [Recovering/Resolving]
  - Bone pain [Recovering/Resolving]
  - Asthenia [Not Recovered/Not Resolved]
  - Discomfort [Recovering/Resolving]
  - Back pain [Not Recovered/Not Resolved]
  - Cough [Recovering/Resolving]
  - Affective disorder [Unknown]
